FAERS Safety Report 4691696-8 (Version None)
Quarter: 2005Q2

REPORT INFORMATION
  Report Type: 
  Country: None (occurrence: None)
  Receive Date: 20050608
  Receipt Date: 20040426
  Transmission Date: 20051028
  Serious: Yes (Other)
  Sender: FDA-Public Use
  Company Number: 336340

PATIENT
  Age: 27 Year
  Sex: Female

DRUGS (3)
  1. ACCUTANE [Suspect]
     Indication: ACNE
     Dosage: 60 MG DAILY 2 PER DAY ORAL
     Route: 048
     Dates: start: 20010929, end: 20020118
  2. CEPHALEXIN [Suspect]
     Indication: DRUG USE FOR UNKNOWN INDICATION
     Dosage: 500 MG 4 PER DAY ORAL
     Route: 048
     Dates: start: 20020104, end: 20020114
  3. PAXIL [Concomitant]

REACTIONS (3)
  - HAEMATOCHEZIA [None]
  - HEPATIC ENZYME INCREASED [None]
  - THROMBOCYTOPENIA [None]
